FAERS Safety Report 18473118 (Version 1)
Quarter: 2020Q4

REPORT INFORMATION
  Report Type: Spontaneous
  Country: US (occurrence: US)
  Receive Date: 20201104
  Receipt Date: 20201104
  Transmission Date: 20210114
  Serious: No
  Sender: FDA-Public Use
  Company Number: None

PATIENT
  Age: 65 Year
  Sex: Male

DRUGS (4)
  1. BENADRYL [Concomitant]
     Active Substance: DIPHENHYDRAMINE HYDROCHLORIDE
  2. ERLEADA [Suspect]
     Active Substance: APALUTAMIDE
     Indication: PROSTATE CANCER
     Route: 048
     Dates: start: 20200915, end: 20201004
  3. METHYLPREDNISONE [Concomitant]
     Active Substance: METHYLPREDNISOLONE
  4. BODY LOTIO [Concomitant]

REACTIONS (3)
  - Rash pruritic [None]
  - Therapy interrupted [None]
  - Rash [None]

NARRATIVE: CASE EVENT DATE: 20200928
